FAERS Safety Report 5626087-6 (Version None)
Quarter: 2008Q1

REPORT INFORMATION
  Report Type: 
  Country: None (occurrence: None)
  Receive Date: 20080213
  Receipt Date: 20080213
  Transmission Date: 20080703
  Serious: Yes (Other)
  Sender: FDA-Public Use
  Company Number: None

PATIENT
  Age: 62 Year
  Sex: Female
  Weight: 74.8435 kg

DRUGS (1)
  1. LEVAQUIN [Suspect]
     Indication: DIVERTICULITIS
     Dosage: 750  ONCE DAILY PO
     Route: 048
     Dates: start: 20080124, end: 20080130

REACTIONS (2)
  - ARTHRALGIA [None]
  - TENDON PAIN [None]
